FAERS Safety Report 6140055-X (Version None)
Quarter: 2009Q2

REPORT INFORMATION
  Report Type: 
  Country: None (occurrence: None)
  Receive Date: 20090401
  Receipt Date: 20090325
  Transmission Date: 20091009
  Serious: Yes (Other)
  Sender: FDA-Public Use
  Company Number: PHHY2009GB11477

PATIENT
  Sex: Male

DRUGS (1)
  1. TOBI [Suspect]

REACTIONS (2)
  - DYSPNOEA [None]
  - OEDEMA PERIPHERAL [None]
